FAERS Safety Report 7310669-X (Version None)
Quarter: 2011Q1

REPORT INFORMATION
  Report Type: 
  Country: None (occurrence: None)
  Receive Date: 20110210
  Receipt Date: 20110125
  Transmission Date: 20110831
  Serious: Yes (Other)
  Sender: FDA-Public Use
  Company Number: ALA_01086_2010

PATIENT
  Sex: Female

DRUGS (1)
  1. REGLAN [Suspect]
     Indication: PRODUCT USED FOR UNKNOWN INDICATION
     Dosage: DF (ORAL)
     Route: 048
     Dates: start: 20080924, end: 20090707

REACTIONS (6)
  - TARDIVE DYSKINESIA [None]
  - ECONOMIC PROBLEM [None]
  - DEMENTIA [None]
  - INJURY [None]
  - EMOTIONAL DISORDER [None]
  - TREMOR [None]
